FAERS Safety Report 9712017 (Version 1)
Quarter: 2013Q4

REPORT INFORMATION
  Report Type: Spontaneous
  Country: US (occurrence: US)
  Receive Date: 20131126
  Receipt Date: 20131126
  Transmission Date: 20140711
  Serious: No
  Sender: FDA-Public Use
  Company Number: US-BRISTOL-MYERS SQUIBB COMPANY-19129360

PATIENT
  Age: 90 Year
  Sex: Female

DRUGS (1)
  1. BYDUREON [Suspect]
     Dates: start: 2013

REACTIONS (4)
  - Injection site nodule [Not Recovered/Not Resolved]
  - Decreased appetite [Unknown]
  - Depression [Unknown]
  - Blood glucose increased [Unknown]
